FAERS Safety Report 19353985 (Version 2)
Quarter: 2021Q3

REPORT INFORMATION
  Report Type: Spontaneous
  Country: IT (occurrence: IT)
  Receive Date: 20210531
  Receipt Date: 20210805
  Transmission Date: 20211014
  Serious: Yes (Other)
  Sender: FDA-Public Use
  Company Number: NVSC2021IT119097

PATIENT
  Age: 45 Year
  Sex: Male

DRUGS (1)
  1. GILENYA [Suspect]
     Active Substance: FINGOLIMOD HYDROCHLORIDE
     Indication: RELAPSING-REMITTING MULTIPLE SCLEROSIS
     Dosage: 0.5 MG, QD
     Route: 065

REACTIONS (5)
  - Macular detachment [Unknown]
  - Visual field defect [Unknown]
  - Visual impairment [Recovering/Resolving]
  - Macular thickening [Unknown]
  - Chorioretinopathy [Recovering/Resolving]

NARRATIVE: CASE EVENT DATE: 202104
